FAERS Safety Report 9970141 (Version 1)
Quarter: 2014Q1

REPORT INFORMATION
  Report Type: Spontaneous
  Country: BR (occurrence: None)
  Receive Date: 20140304
  Receipt Date: 20140304
  Transmission Date: 20141002
  Serious: Yes (Hospitalization)
  Sender: FDA-Public Use
  Company Number: DSJ-2014-04437

PATIENT
  Age: 77 Year
  Sex: Female

DRUGS (8)
  1. BENICAR [Suspect]
     Indication: HYPERTENSION
     Route: 048
  2. EFFIENT [Suspect]
     Indication: ANTIPLATELET THERAPY
     Route: 048
  3. LEVOTHYROXINE SODIUM (LEVOTHYROXINE SODIUM) [Concomitant]
  4. EZETIMIBE/SIMVASTATIN (SIMVASTATIN EZETIMIBE) (SIMVASTATIN, EZETIMIBE) [Concomitant]
  5. FOLIC ACID (FOLIC ACID) (FOLIC ACID) [Concomitant]
  6. PANTOPRAZOLE  (PANTOPRAZOLE) (PANTOPRAZOLE) [Concomitant]
  7. SENNA/CASIA FISTULA/TAMARINDUS INDICA/CORIANDRUM SATIVUM/GLYCERHIZA GLABRA [Concomitant]
  8. BLUCLIZINE (BUCLIZINE) (BUCLIZINE) [Concomitant]

REACTIONS (6)
  - Urinary retention [None]
  - Chest pain [None]
  - Fatigue [None]
  - Abdominal distension [None]
  - Pneumonia [None]
  - Urinary tract infection [None]
